FAERS Safety Report 22355266 (Version 1)
Quarter: 2023Q2

REPORT INFORMATION
  Report Type: Spontaneous
  Country: US (occurrence: None)
  Receive Date: 20230522
  Receipt Date: 20230522
  Transmission Date: 20230721
  Serious: No
  Sender: FDA-Public Use
  Company Number: None

PATIENT
  Sex: Male

DRUGS (11)
  1. TEMOZOLOMIDE [Suspect]
     Active Substance: TEMOZOLOMIDE
     Indication: Brain neoplasm malignant
     Dosage: OTHER QUANTITY : 1CAP PM;?FREQUENCY : DAILY;?
     Route: 048
  2. ondanestron [Concomitant]
  3. LEVETIRACETAM [Concomitant]
  4. PANTOPRAZOLE SODIUM [Concomitant]
  5. LOSARTAN POTASSIUM [Concomitant]
  6. TOUJEO [Concomitant]
  7. ATORVASTATIN CALCIUM [Concomitant]
     Active Substance: ATORVASTATIN CALCIUM
  8. ATENOLOL [Concomitant]
  9. FOLIC ACID [Concomitant]
     Active Substance: FOLIC ACID
  10. ASPIRIN [Concomitant]
     Active Substance: ASPIRIN
  11. LEVOTHYROXINE [Concomitant]
     Active Substance: LEVOTHYROXINE

REACTIONS (2)
  - Brain neoplasm malignant [None]
  - Malignant neoplasm progression [None]
